FAERS Safety Report 15166982 (Version 2)
Quarter: 2018Q3

REPORT INFORMATION
  Report Type: Spontaneous
  Country: US (occurrence: US)
  Receive Date: 20180719
  Receipt Date: 20180817
  Transmission Date: 20181010
  Serious: No
  Sender: FDA-Public Use
  Company Number: US-ASTRAZENECA-2018SE84092

PATIENT
  Age: 23669 Day
  Sex: Female
  Weight: 90.7 kg

DRUGS (2)
  1. BYDUREON [Suspect]
     Active Substance: EXENATIDE
     Indication: WEIGHT DECREASED
     Route: 058
     Dates: start: 20180622
  2. BYDUREON [Suspect]
     Active Substance: EXENATIDE
     Indication: GLUCOSE TOLERANCE IMPAIRED
     Route: 058
     Dates: start: 20180622

REACTIONS (8)
  - Injection site pain [Unknown]
  - Drug dose omission [Unknown]
  - Off label use [Not Recovered/Not Resolved]
  - Starvation [Not Recovered/Not Resolved]
  - Injection site haemorrhage [Recovered/Resolved]
  - Product use in unapproved indication [Unknown]
  - Wrong technique in device usage process [Unknown]
  - Needle issue [Unknown]

NARRATIVE: CASE EVENT DATE: 20180622
